FAERS Safety Report 10369442 (Version 1)
Quarter: 2014Q1

REPORT INFORMATION
  Report Type: Spontaneous
  Country: US (occurrence: None)
  Receive Date: 20140306
  Receipt Date: 20140306
  Transmission Date: 20141002
  Serious: Yes (Hospitalization)
  Sender: FDA-Public Use
  Company Number: 163-21880-13091187

PATIENT
  Age: 58 Year
  Sex: Female
  Weight: 102.06 kg

DRUGS (2)
  1. REVLIMID (LENALIDOMIDE) (20 MILLIGRAM, CAPSULES) [Suspect]
     Indication: PLASMA CELL MYELOMA
     Dosage: 20 MG, 21 IN 21 D, PO
     Route: 048
     Dates: start: 20130628
  2. BLOOD TRANSFUSION (BLOOD AND RELATED PRODUCTS) (INJECTION FOR INFUSION) [Concomitant]

REACTIONS (3)
  - Anaemia [None]
  - Asthenia [None]
  - Dyspnoea [None]
